FAERS Safety Report 20433484 (Version 2)
Quarter: 2023Q2

REPORT INFORMATION
  Report Type: Report from Study
  Country: CA (occurrence: CA)
  Receive Date: 20220205
  Receipt Date: 20230518
  Transmission Date: 20230722
  Serious: Yes (Other)
  Sender: FDA-Public Use
  Company Number: CA-JNJFOC-20220152296

PATIENT
  Age: 35 Year
  Sex: Male

DRUGS (1)
  1. STELARA [Suspect]
     Active Substance: USTEKINUMAB
     Indication: Psoriasis
     Dosage: 90 MG-MAINTENANCE SC AT WEEKS 0, 4,16, 28, AND 40 (90 MG X 5)
     Route: 058

REACTIONS (2)
  - Hallucination [Recovered/Resolved]
  - Paranoia [Unknown]
